FAERS Safety Report 11292285 (Version 4)
Quarter: 2015Q3

REPORT INFORMATION
  Report Type: Spontaneous
  Country: US (occurrence: US)
  Receive Date: 20150722
  Receipt Date: 20150819
  Transmission Date: 20151125
  Serious: Yes (Death, Hospitalization)
  Sender: FDA-Public Use
  Company Number: US-ACTELION-A-US2015-121309

PATIENT
  Age: 70 Year
  Sex: Female

DRUGS (1)
  1. VENTAVIS [Suspect]
     Active Substance: ILOPROST
     Indication: PULMONARY ARTERIAL HYPERTENSION
     Dosage: 5 MCG
     Route: 055
     Dates: start: 20140328

REACTIONS (4)
  - General physical health deterioration [Not Recovered/Not Resolved]
  - Transplant evaluation [Unknown]
  - Dyspnoea [Recovering/Resolving]
  - Cardiac arrest [Fatal]

NARRATIVE: CASE EVENT DATE: 20150715
